FAERS Safety Report 15957857 (Version 1)
Quarter: 2019Q1

REPORT INFORMATION
  Report Type: Spontaneous
  Country: US (occurrence: US)
  Receive Date: 20190213
  Receipt Date: 20190213
  Transmission Date: 20190417
  Serious: Yes (Life-Threatening)
  Sender: FDA-Public Use
  Company Number: US-PFIZER INC-2019064416

PATIENT
  Age: 75 Year
  Sex: Male
  Weight: 107.1 kg

DRUGS (2)
  1. METHOTREXATE SODIUM. [Suspect]
     Active Substance: METHOTREXATE SODIUM
     Indication: NON-HODGKIN^S LYMPHOMA
     Dosage: 2 G, UNK
     Dates: start: 20190202, end: 20190202
  2. LEUCOVORIN [FOLINIC ACID] [Concomitant]
     Active Substance: LEUCOVORIN
     Indication: NON-HODGKIN^S LYMPHOMA
     Dosage: UNK (THE DOSE VARIES; IT IS AN ALGORITHM THAT IS FOLLOWED PER THE PRODUCT INSERT.)

REACTIONS (3)
  - Drug level increased [Recovering/Resolving]
  - Drug clearance decreased [Recovering/Resolving]
  - Toxicity to various agents [Recovering/Resolving]

NARRATIVE: CASE EVENT DATE: 20190203
